FAERS Safety Report 19196903 (Version 26)
Quarter: 2022Q3

REPORT INFORMATION
  Report Type: Report from Study
  Country: AU (occurrence: AU)
  Receive Date: 20210430
  Receipt Date: 20220928
  Transmission Date: 20221026
  Serious: Yes (Hospitalization, Other)
  Sender: FDA-Public Use
  Company Number: AU-BIOGEN-2021BI01004518

PATIENT
  Age: 54 Year
  Sex: Female

DRUGS (5)
  1. TYSABRI [Suspect]
     Active Substance: NATALIZUMAB
     Indication: Relapsing-remitting multiple sclerosis
     Dosage: INFUSED OVER 1 HOUR - 300MG/15ML
     Route: 050
     Dates: start: 20160905
  2. MODERNA COVID-19 VACCINE [Suspect]
     Active Substance: ELASOMERAN
     Indication: COVID-19 prophylaxis
     Route: 050
     Dates: start: 20211101
  3. PFIZER-BIONTECH COVID-19 VACCINE [Suspect]
     Active Substance: TOZINAMERAN
     Indication: COVID-19 prophylaxis
     Dosage: 2ND OF 2
     Route: 050
  4. PFIZER-BIONTECH COVID-19 VACCINE [Suspect]
     Active Substance: TOZINAMERAN
     Dosage: 2 OF 2
     Route: 050
     Dates: start: 20211213, end: 20211213
  5. MEDCAN Australia FX04 [Concomitant]
     Indication: Product used for unknown indication
     Route: 050

REACTIONS (32)
  - Renal lipoma [Not Recovered/Not Resolved]
  - Nephrolithiasis [Recovered/Resolved]
  - Hydrovarium [Not Recovered/Not Resolved]
  - Oophoritis [Not Recovered/Not Resolved]
  - Ovarian mass [Not Recovered/Not Resolved]
  - Uterine infection [Not Recovered/Not Resolved]
  - Hepatic steatosis [Not Recovered/Not Resolved]
  - Body temperature increased [Recovered/Resolved]
  - Pain [Recovered/Resolved]
  - Adenomyosis [Not Recovered/Not Resolved]
  - Anxiety [Not Recovered/Not Resolved]
  - Sleep disorder [Not Recovered/Not Resolved]
  - Post procedural complication [Not Recovered/Not Resolved]
  - Depression [Not Recovered/Not Resolved]
  - Immunisation reaction [Not Recovered/Not Resolved]
  - Multiple sclerosis [Not Recovered/Not Resolved]
  - Depressed mood [Not Recovered/Not Resolved]
  - Apathy [Not Recovered/Not Resolved]
  - Anaesthetic complication [Recovered/Resolved]
  - Peripheral swelling [Recovered/Resolved]
  - Procedural pain [Not Recovered/Not Resolved]
  - Vein collapse [Unknown]
  - Oropharyngeal pain [Not Recovered/Not Resolved]
  - Productive cough [Not Recovered/Not Resolved]
  - Musculoskeletal chest pain [Not Recovered/Not Resolved]
  - Candida infection [Not Recovered/Not Resolved]
  - Altered visual depth perception [Unknown]
  - Tinnitus [Not Recovered/Not Resolved]
  - Sleep apnoea syndrome [Unknown]
  - Poor quality sleep [Not Recovered/Not Resolved]
  - Lymphocyte count increased [Unknown]
  - Fatigue [Not Recovered/Not Resolved]

NARRATIVE: CASE EVENT DATE: 20210628
